FAERS Safety Report 24450224 (Version 2)
Quarter: 2024Q4

REPORT INFORMATION
  Report Type: Spontaneous
  Country: DE (occurrence: DE)
  Receive Date: 20241017
  Receipt Date: 20241114
  Transmission Date: 20250115
  Serious: Yes (Other)
  Sender: ALEXION PHARMACEUTICALS
  Company Number: DE-ASTRAZENECA-202409EEA009894DE

PATIENT
  Age: 56 Year

DRUGS (4)
  1. TICAGRELOR [Suspect]
     Active Substance: TICAGRELOR
     Dosage: UNK
  2. TICAGRELOR [Suspect]
     Active Substance: TICAGRELOR
     Dosage: UNK
  3. TICAGRELOR [Suspect]
     Active Substance: TICAGRELOR
     Dosage: UNK
  4. TICAGRELOR [Suspect]
     Active Substance: TICAGRELOR
     Dosage: UNK

REACTIONS (6)
  - Cerebrovascular accident [Unknown]
  - Product blister packaging issue [Unknown]
  - Depression [Unknown]
  - Haemorrhage [Unknown]
  - Haematoma [Unknown]
  - Dyspnoea [Unknown]
